FAERS Safety Report 7737924-3 (Version None)
Quarter: 2011Q3

REPORT INFORMATION
  Report Type: 
  Country: None (occurrence: None)
  Receive Date: 20110908
  Receipt Date: 20110906
  Transmission Date: 20111222
  Serious: Yes (Other)
  Sender: FDA-Public Use
  Company Number: PHEH2009US03937

PATIENT
  Sex: Female

DRUGS (14)
  1. ZANTAC [Concomitant]
  2. LEVEMIR [Concomitant]
  3. FASLODEX [Concomitant]
  4. NOVOLOG [Concomitant]
  5. ACCUPRIL [Concomitant]
  6. ZOMETA [Suspect]
  7. INSULIN [Concomitant]
  8. RESTORIL [Concomitant]
  9. ZYRTEC [Concomitant]
  10. CARDIZEM [Concomitant]
  11. LEXAPRO [Concomitant]
  12. MUCINEX [Concomitant]
  13. CIPROFLOXACIN [Concomitant]
  14. FOSAMAX [Suspect]

REACTIONS (14)
  - ANHEDONIA [None]
  - NEPHROLITHIASIS [None]
  - OSTEONECROSIS OF JAW [None]
  - BREAST CANCER [None]
  - ARTHRITIS [None]
  - METASTASES TO BONE [None]
  - DISABILITY [None]
  - BONE LESION [None]
  - INJURY [None]
  - PAIN [None]
  - CARDIAC MURMUR [None]
  - BRONCHITIS [None]
  - DIABETES MELLITUS [None]
  - ANXIETY [None]
